FAERS Safety Report 5741971-0 (Version None)
Quarter: 2008Q2

REPORT INFORMATION
  Report Type: 
  Country: None (occurrence: None)
  Receive Date: 20080519
  Receipt Date: 20080509
  Transmission Date: 20081010
  Serious: Yes (Life-Threatening, Hospitalization)
  Sender: FDA-Public Use
  Company Number: US-ELI_LILLY_AND_COMPANY-US200803002962

PATIENT
  Sex: Male
  Weight: 95.238 kg

DRUGS (1)
  1. ZYPREXA [Suspect]

REACTIONS (3)
  - BLOOD GLUCOSE FLUCTUATION [None]
  - DYSPNOEA [None]
  - RESPIRATORY ARREST [None]
